FAERS Safety Report 5149780-0 (Version None)
Quarter: 2006Q4

REPORT INFORMATION
  Report Type: 
  Country: None (occurrence: None)
  Receive Date: 20061113
  Receipt Date: 20060810
  Transmission Date: 20070319
  Serious: Yes (Hospitalization, Other)
  Sender: FDA-Public Use
  Company Number: US-ELI_LILLY_AND_COMPANY-US200608002515

PATIENT
  Age: 88 Year
  Sex: Female

DRUGS (9)
  1. SYNTHROID [Concomitant]
     Dosage: 0.075 UNK, DAILY (1/D)
  2. LOTREL [Concomitant]
     Dosage: 5/20
  3. RANITIDINE [Concomitant]
     Dosage: 150 UNK, 2/D
  4. BISOPROLOL W/HYDROCHLOROTHIAZIDE [Concomitant]
     Dosage: UNK, DAILY (1/D)
  5. VITAMINS-MINERALS THERAPEUTIC [Concomitant]
     Dosage: UNK, DAILY (1/D)
  6. ALPHAGAN [Concomitant]
     Dosage: UNK, 2/D
  7. COSOPT [Concomitant]
     Dosage: UNK, 2/D
  8. XALATAN                                 /SWE/ [Concomitant]
     Dosage: UNK, EACH EVENING
  9. FORTEO [Suspect]
     Indication: OSTEOPOROSIS
     Dosage: 20 UG, DAILY (1/D)
     Dates: start: 20051101

REACTIONS (8)
  - AORTIC ARTERIOSCLEROSIS [None]
  - FALL [None]
  - HIP FRACTURE [None]
  - HYPERTENSIVE HEART DISEASE [None]
  - LACTOSE INTOLERANCE [None]
  - PHARMACEUTICAL PRODUCT COMPLAINT [None]
  - VERTIGO POSITIONAL [None]
  - VISUAL ACUITY REDUCED [None]
